FAERS Safety Report 8929206 (Version 1)
Quarter: 2012Q4

REPORT INFORMATION
  Report Type: Spontaneous
  Country: US (occurrence: None)
  Receive Date: 20121126
  Receipt Date: 20121126
  Transmission Date: 20130627
  Serious: Yes (Other)
  Sender: FDA-Public Use
  Company Number: None

PATIENT
  Age: 57 Year
  Sex: Female
  Weight: 50.35 kg

DRUGS (6)
  1. URSODIOL CAPSULES [Suspect]
     Indication: GALLBLADDER DISORDER
     Dosage: 2 TIMES A DAY
     Route: 048
     Dates: start: 20121021, end: 20121022
  2. URSODIOL CAPSULES [Suspect]
     Indication: PROPHYLAXIS
     Dosage: 2 TIMES A DAY
     Route: 048
     Dates: start: 20121021, end: 20121022
  3. ROCEPHIN [Concomitant]
  4. SYNTHROID 50 MCG [Concomitant]
  5. METHADONE 2.5 MG [Concomitant]
  6. ATIVAN 1 MG [Concomitant]

REACTIONS (3)
  - Contusion [None]
  - Gingival bleeding [None]
  - Bleeding time prolonged [None]
